FAERS Safety Report 12427253 (Version 1)
Quarter: 2016Q2

REPORT INFORMATION
  Report Type: Spontaneous
  Country: US (occurrence: US)
  Receive Date: 20160602
  Receipt Date: 20160602
  Transmission Date: 20160815
  Serious: No
  Sender: FDA-Public Use
  Company Number: US-ALKEM-001091

PATIENT
  Sex: Female

DRUGS (1)
  1. AMLODIPINE ASCEND^S [Suspect]
     Active Substance: AMLODIPINE BESYLATE
     Indication: PRODUCT USED FOR UNKNOWN INDICATION
     Dosage: STRENGTH: 5 MG

REACTIONS (3)
  - Chest pain [Unknown]
  - Hypersensitivity [Unknown]
  - Headache [Unknown]
